FAERS Safety Report 13342635 (Version 2)
Quarter: 2017Q2

REPORT INFORMATION
  Report Type: Spontaneous
  Country: TW (occurrence: TW)
  Receive Date: 20170316
  Receipt Date: 20170410
  Transmission Date: 20170830
  Serious: Yes (Other)
  Sender: FDA-Public Use
  Company Number: TW-ELI_LILLY_AND_COMPANY-TW201703003036

PATIENT
  Age: 39 Year
  Sex: Female

DRUGS (3)
  1. CYRAMZA [Suspect]
     Active Substance: RAMUCIRUMAB
     Indication: ADENOCARCINOMA GASTRIC
     Dosage: UNK UNK, UNKNOWN
     Route: 065
     Dates: start: 201606, end: 201607
  2. PACLITAXEL. [Concomitant]
     Active Substance: PACLITAXEL
     Indication: ADENOCARCINOMA GASTRIC
     Dosage: UNK, UNKNOWN
     Route: 065
     Dates: start: 201606
  3. CYRAMZA [Suspect]
     Active Substance: RAMUCIRUMAB
     Dosage: UNK UNK, UNKNOWN
     Route: 065
     Dates: start: 201608

REACTIONS (1)
  - Disease progression [Recovering/Resolving]

NARRATIVE: CASE EVENT DATE: 201608
